FAERS Safety Report 9470652 (Version 1)
Quarter: 2013Q3

REPORT INFORMATION
  Report Type: Spontaneous
  Country: FR (occurrence: FR)
  Receive Date: 20130822
  Receipt Date: 20130822
  Transmission Date: 20140515
  Serious: Yes (Hospitalization, Other)
  Sender: FDA-Public Use
  Company Number: FR-ELI_LILLY_AND_COMPANY-FR201308003771

PATIENT
  Age: 75 Year
  Sex: Male

DRUGS (11)
  1. ZYPREXA [Suspect]
     Dosage: 10 MG, TID
     Route: 048
  2. LOXAPAC [Suspect]
     Dosage: 100 MG, QD
     Route: 048
  3. LOXAPAC [Suspect]
     Dosage: 50 MG, UNK
  4. SERESTA [Concomitant]
     Dosage: 50 MG, QD
  5. MELAXOSE [Concomitant]
     Dosage: 2 DF, TID
  6. IMOVANE [Concomitant]
     Dosage: 1 DF, QD
  7. DEPAMIDE [Concomitant]
     Dosage: 600 MG, QD
  8. NORMACOL [Concomitant]
     Dosage: 1 DF, UNKNOWN
  9. XATRAL [Concomitant]
     Dosage: 2.5 MG, TID
  10. DIFFU K [Concomitant]
     Dosage: 1 DF, BID
  11. INEXIUM [Concomitant]
     Dosage: 40 MG, QD

REACTIONS (3)
  - Pneumonia aspiration [Recovered/Resolved]
  - Aspiration [Unknown]
  - Overdose [Unknown]
